FAERS Safety Report 5920301-5 (Version None)
Quarter: 2008Q4

REPORT INFORMATION
  Report Type: 
  Country: None (occurrence: None)
  Receive Date: 20081016
  Receipt Date: 20081013
  Transmission Date: 20090506
  Serious: Yes (Other)
  Sender: FDA-Public Use
  Company Number: US-BAYER-200827350NA

PATIENT
  Age: 37 Year
  Sex: Female
  Weight: 82 kg

DRUGS (3)
  1. MIRENA [Suspect]
     Indication: CONTRACEPTION
     Route: 015
     Dates: start: 20070201
  2. AMITRIPTYLINE HCL [Concomitant]
     Indication: DEPRESSION
     Route: 048
  3. SERTRALINE HYDROCHLORIDE [Concomitant]
     Indication: DEPRESSION
     Route: 048

REACTIONS (9)
  - ABDOMINAL PAIN LOWER [None]
  - ANXIETY [None]
  - BURNING SENSATION [None]
  - FIBROMYALGIA [None]
  - INSOMNIA [None]
  - PROCEDURAL PAIN [None]
  - RASH [None]
  - TREMOR [None]
  - WEIGHT INCREASED [None]
